FAERS Safety Report 26089122 (Version 1)
Quarter: 2025Q4

REPORT INFORMATION
  Report Type: Spontaneous
  Country: CN (occurrence: CN)
  Receive Date: 20251125
  Receipt Date: 20251125
  Transmission Date: 20260117
  Serious: Yes (Life-Threatening, Hospitalization)
  Sender: PFIZER
  Company Number: CN-PFIZER INC-PV202500137520

PATIENT
  Age: 55 Year
  Sex: Male
  Weight: 42 kg

DRUGS (9)
  1. METHOTREXATE SODIUM [Suspect]
     Active Substance: METHOTREXATE SODIUM
     Indication: Lung neoplasm malignant
     Dosage: 10 MG, 1X/DAY
     Route: 037
     Dates: start: 20251101, end: 20251101
  2. METHOTREXATE SODIUM [Suspect]
     Active Substance: METHOTREXATE SODIUM
     Dosage: 10 MG, 1X/DAY
     Route: 037
     Dates: start: 20251107, end: 20251107
  3. METHOTREXATE SODIUM [Suspect]
     Active Substance: METHOTREXATE SODIUM
     Dosage: 10 MG, 1X/DAY
     Route: 037
     Dates: start: 20251114, end: 20251114
  4. IVONESCIMAB [Suspect]
     Active Substance: IVONESCIMAB
     Indication: Lung neoplasm malignant
     Dosage: 0.8 G, 1X/DAY
     Route: 041
     Dates: start: 20251107, end: 20251107
  5. PEMETREXED DISODIUM [Suspect]
     Active Substance: PEMETREXED DISODIUM
     Indication: Lung neoplasm malignant
     Dosage: 0.68 G, 1X/DAY
     Route: 041
     Dates: start: 20251107, end: 20251107
  6. SODIUM CHLORIDE [Concomitant]
     Active Substance: SODIUM CHLORIDE
     Indication: Vehicle solution use
     Dosage: 10 ML, 1X/DAY
     Route: 037
     Dates: start: 20251101, end: 20251101
  7. SODIUM CHLORIDE [Concomitant]
     Active Substance: SODIUM CHLORIDE
     Dosage: 10 ML, 1X/DAY
     Route: 037
     Dates: start: 20251107, end: 20251107
  8. SODIUM CHLORIDE [Concomitant]
     Active Substance: SODIUM CHLORIDE
     Dosage: 10 ML, 1X/DAY
     Route: 037
     Dates: start: 20251114, end: 20251114
  9. SODIUM CHLORIDE [Concomitant]
     Active Substance: SODIUM CHLORIDE
     Indication: Vehicle solution use
     Dosage: 450 ML, 1X/DAY
     Route: 041
     Dates: start: 20251107, end: 20251107

REACTIONS (4)
  - White blood cell count decreased [Unknown]
  - Platelet count decreased [Unknown]
  - Myelosuppression [Unknown]
  - Asthenia [Unknown]

NARRATIVE: CASE EVENT DATE: 20251101
